FAERS Safety Report 15302764 (Version 1)
Quarter: 2018Q3

REPORT INFORMATION
  Report Type: Spontaneous
  Country: US (occurrence: US)
  Receive Date: 20180821
  Receipt Date: 20180821
  Transmission Date: 20181010
  Serious: No
  Sender: FDA-Public Use
  Company Number: US-BAUSCH-BL-2018-020504

PATIENT
  Age: 33 Year
  Sex: Male
  Weight: 90.8 kg

DRUGS (1)
  1. NEOMYCIN AND POLYMYXIN B SULFATES AND HYDROCORTISONE [Suspect]
     Active Substance: HYDROCORTISONE\NEOMYCIN SULFATE\POLYMYXIN B SULFATE
     Indication: EAR INFECTION
     Dosage: IN BOTH THE EARS. OTIC
     Route: 001
     Dates: start: 20180709, end: 20180724

REACTIONS (5)
  - Drug effect incomplete [Recovered/Resolved]
  - Product substitution issue [Unknown]
  - Condition aggravated [Recovering/Resolving]
  - Ear infection [Recovering/Resolving]
  - Product quality issue [Recovered/Resolved]

NARRATIVE: CASE EVENT DATE: 201807
